FAERS Safety Report 8224878 (Version 5)
Quarter: 2012Q4

REPORT INFORMATION
  Report Type: 
  Country: US (occurrence: US)
  Receive Date: 20111103
  Receipt Date: 20121011
  Transmission Date: 20130627
  Serious: Yes (Other)
  Sender: FDA-Public Use
  Company Number: US-JNJFOC-20111012811

PATIENT
  Age: 52 None
  Sex: Male
  Weight: 90.72 kg

DRUGS (8)
  1. RAZADYNE ER [Suspect]
     Indication: HEAD INJURY
     Route: 048
  2. RAZADYNE ER [Suspect]
     Indication: HEAD INJURY
     Route: 048
     Dates: start: 201011, end: 20111024
  3. CELEBREX [Suspect]
     Indication: BACK PAIN
     Route: 048
     Dates: start: 2003, end: 20120921
  4. DURAGESIC [Concomitant]
     Indication: BACK PAIN
     Route: 062
     Dates: start: 2004, end: 201206
  5. CYMBALTA [Concomitant]
     Indication: NEUROPATHY PERIPHERAL
     Route: 048
     Dates: start: 2007
  6. PERCOCET [Concomitant]
     Indication: BACK PAIN
     Dosage: 10/325mg
     Route: 048
     Dates: start: 201206
  7. ZOLOFT [Concomitant]
     Indication: DEPRESSION
     Route: 065
     Dates: start: 201110
  8. ZOLOFT [Concomitant]
     Indication: DEPRESSION
     Route: 065
     Dates: end: 201109

REACTIONS (6)
  - Duodenal ulcer [Not Recovered/Not Resolved]
  - Hyperhidrosis [Recovering/Resolving]
  - Depression [Not Recovered/Not Resolved]
  - Attention deficit/hyperactivity disorder [Not Recovered/Not Resolved]
  - Therapy cessation [Unknown]
  - Drug dose omission [Unknown]
